FAERS Safety Report 7166547-2 (Version None)
Quarter: 2010Q4

REPORT INFORMATION
  Report Type: 
  Country: None (occurrence: None)
  Receive Date: 20101202
  Receipt Date: 20101112
  Transmission Date: 20110411
  Serious: Yes (Other)
  Sender: FDA-Public Use
  Company Number: 2010MA004520

PATIENT
  Age: 71 Year
  Sex: Female

DRUGS (10)
  1. INDAPAMIDE [Suspect]
     Indication: HYPERTENSION
     Dosage: 1.5 MG;
     Dates: start: 20090501
  2. CIPROFIBRATE [Concomitant]
  3. FEXOFENADINE HCL [Concomitant]
  4. CANDESARTAN [Concomitant]
  5. BISOPROLOL [Concomitant]
  6. MOXONIDINE [Concomitant]
  7. ACETYLSALICYLIC ACID SRT [Concomitant]
  8. GLUCOSAMINE [Concomitant]
  9. LETROZOLE [Concomitant]
  10. RADIOTHERAPY [Concomitant]

REACTIONS (4)
  - PRURITUS [None]
  - RASH [None]
  - SKIN EXFOLIATION [None]
  - URTICARIA [None]
